FAERS Safety Report 5605511-9 (Version None)
Quarter: 2008Q1

REPORT INFORMATION
  Report Type: 
  Country: None (occurrence: None)
  Receive Date: 20080123
  Receipt Date: 20080116
  Transmission Date: 20080703
  Serious: Yes (Life-Threatening, Hospitalization)
  Sender: FDA-Public Use
  Company Number: TCI2008A00211

PATIENT
  Age: 80 Year
  Sex: Male

DRUGS (9)
  1. ACTOS [Suspect]
     Indication: DIABETES MELLITUS
     Dosage: 15 MG (15 MG, 1D) PER ORAL
     Route: 048
     Dates: end: 20080106
  2. ALPRAZOLAM [Concomitant]
  3. PAXIL [Concomitant]
  4. URSO 250 [Concomitant]
  5. PHENLASE-S (ENZYMES NOS) [Concomitant]
  6. NIZANON (NIZATIDINE) [Concomitant]
  7. DEPAS (ETIZOLAM) [Concomitant]
  8. CALONAL (PARACETAMOL) [Concomitant]
  9. KOLANTYL (DICYCLOVERINE HYDROCHLORIDE, MAGNESIUM OXIDE, METHYLCELLULOS [Concomitant]

REACTIONS (5)
  - DYSPNOEA [None]
  - GAIT DISTURBANCE [None]
  - NEPHRITIS [None]
  - REPETITIVE SPEECH [None]
  - RHABDOMYOLYSIS [None]
